FAERS Safety Report 7134003-3 (Version None)
Quarter: 2010Q4

REPORT INFORMATION
  Report Type: 
  Country: None (occurrence: None)
  Receive Date: 20101203
  Receipt Date: 20101119
  Transmission Date: 20110411
  Serious: Yes (Other)
  Sender: FDA-Public Use
  Company Number: JP-RANBAXY-2010RR-38437

PATIENT
  Age: 64 Year
  Sex: Female

DRUGS (4)
  1. LANSOPRAZOLE [Suspect]
     Dosage: 30 MG, UNK
  2. FAMOTIDINE [Suspect]
     Dosage: 40 MG, UNK
  3. PANIPENEM/BETAMIPRON [Suspect]
     Dosage: 1 G, UNK
  4. GARENOXACIN [Suspect]
     Dosage: 400 MG, UNK

REACTIONS (2)
  - LYMPHOCYTE STIMULATION TEST POSITIVE [None]
  - TUBULOINTERSTITIAL NEPHRITIS [None]
